FAERS Safety Report 7312940-4 (Version None)
Quarter: 2011Q1

REPORT INFORMATION
  Report Type: 
  Country: None (occurrence: None)
  Receive Date: 20110224
  Receipt Date: 20110216
  Transmission Date: 20110831
  Serious: Yes (Hospitalization)
  Sender: FDA-Public Use
  Company Number: US-WATSON-2011-01950

PATIENT
  Sex: Female
  Weight: 73.016 kg

DRUGS (5)
  1. NIACIN [Concomitant]
     Indication: BLOOD TRIGLYCERIDES INCREASED
     Dosage: 2 DAILY
     Route: 048
  2. URSODIOL [Suspect]
     Indication: BILIARY CIRRHOSIS PRIMARY
     Dosage: 1 CAPSULE EVERY OTHER DAY
     Route: 048
     Dates: start: 20101223, end: 20110214
  3. URSODIOL [Suspect]
     Dosage: 1 CAPSULE EVERY DAY
     Route: 048
     Dates: start: 20101001, end: 20101222
  4. TUMS                               /00108001/ [Concomitant]
     Indication: MINERAL SUPPLEMENTATION
     Dosage: 2 DAILY
     Route: 048
  5. VITAMIN A [Concomitant]
     Indication: SUPPLEMENTATION THERAPY
     Dosage: 1 DAILY
     Route: 048

REACTIONS (15)
  - EPISTAXIS [None]
  - ANXIETY [None]
  - FATIGUE [None]
  - DRY SKIN [None]
  - SKIN EXFOLIATION [None]
  - NAIL DISORDER [None]
  - NAIL BED DISORDER [None]
  - RHINORRHOEA [None]
  - ERYTHEMA [None]
  - COUGH [None]
  - WEIGHT DECREASED [None]
  - NASAL DRYNESS [None]
  - BLOOD PRESSURE INCREASED [None]
  - RASH PRURITIC [None]
  - INSOMNIA [None]
